FAERS Safety Report 23266346 (Version 16)
Quarter: 2025Q3

REPORT INFORMATION
  Report Type: Report from Study
  Country: AU (occurrence: AU)
  Receive Date: 20231206
  Receipt Date: 20250930
  Transmission Date: 20251020
  Serious: Yes (Hospitalization, Other)
  Sender: TAKEDA
  Company Number: AU-TAKEDA-2023TUS057166

PATIENT
  Age: 68 Year
  Sex: Male

DRUGS (24)
  1. TEDUGLUTIDE [Suspect]
     Active Substance: TEDUGLUTIDE
     Indication: Short-bowel syndrome
     Dosage: 0.44 MILLILITER, QD
     Dates: start: 20230320
  2. TEDUGLUTIDE [Suspect]
     Active Substance: TEDUGLUTIDE
     Dosage: 0.42 MILLILITER, QD
     Dates: start: 20230612
  3. TEDUGLUTIDE [Suspect]
     Active Substance: TEDUGLUTIDE
     Dosage: UNK UNK, QD
  4. TEDUGLUTIDE [Suspect]
     Active Substance: TEDUGLUTIDE
  5. TEDUGLUTIDE [Suspect]
     Active Substance: TEDUGLUTIDE
     Dosage: 0.38 MILLILITER, QD
  6. TEDUGLUTIDE [Suspect]
     Active Substance: TEDUGLUTIDE
  7. TEDUGLUTIDE [Suspect]
     Active Substance: TEDUGLUTIDE
  8. TEDUGLUTIDE [Suspect]
     Active Substance: TEDUGLUTIDE
     Dosage: 0.36 MILLILITER, QD
  9. TEDUGLUTIDE [Suspect]
     Active Substance: TEDUGLUTIDE
     Dosage: 0.4 MILLILITER, QD
  10. TEDUGLUTIDE [Suspect]
     Active Substance: TEDUGLUTIDE
  11. TEDUGLUTIDE [Suspect]
     Active Substance: TEDUGLUTIDE
  12. TEDUGLUTIDE [Suspect]
     Active Substance: TEDUGLUTIDE
  13. TEDUGLUTIDE [Suspect]
     Active Substance: TEDUGLUTIDE
     Dosage: 0.34 MILLILITER, QD
  14. TEDUGLUTIDE [Suspect]
     Active Substance: TEDUGLUTIDE
     Dosage: 0.18 MILLILITER, QD
     Dates: start: 20241120
  15. TEDUGLUTIDE [Suspect]
     Active Substance: TEDUGLUTIDE
     Dosage: 0.36 MILLILITER, QD
  16. TEDUGLUTIDE [Suspect]
     Active Substance: TEDUGLUTIDE
     Dosage: 0.34 MILLILITER, QD
     Dates: start: 20250919, end: 20250919
  17. METFORMIN [Suspect]
     Active Substance: METFORMIN HYDROCHLORIDE
     Indication: Diabetes mellitus
     Dosage: 4 DOSAGE FORM, QD
  18. OZEMPIC [Suspect]
     Active Substance: SEMAGLUTIDE
     Indication: Diabetes mellitus
     Dosage: UNK UNK, 1/WEEK
     Dates: start: 20230320
  19. LOPERAMIDE [Suspect]
     Active Substance: LOPERAMIDE
     Indication: Product used for unknown indication
     Dosage: UNK UNK, QID
  20. DULOXETINE [Concomitant]
     Active Substance: DULOXETINE
     Dosage: UNK UNK, QD
  21. PREGABALIN [Concomitant]
     Active Substance: PREGABALIN
     Dosage: UNK UNK, QD
  22. MIANSERIN HYDROCHLORIDE [Concomitant]
     Active Substance: MIANSERIN HYDROCHLORIDE
     Dosage: UNK UNK, QD
  23. NEXIUM [Concomitant]
     Active Substance: ESOMEPRAZOLE MAGNESIUM
     Dosage: UNK UNK, QD
  24. TEMAZEPAM [Concomitant]
     Active Substance: TEMAZEPAM
     Dosage: UNK UNK, QD

REACTIONS (10)
  - Nephrolithiasis [Recovered/Resolved]
  - Dizziness [Recovered/Resolved]
  - Hyperhidrosis [Recovered/Resolved]
  - Incisional hernia [Recovering/Resolving]
  - Hypoglycaemia [Recovered/Resolved]
  - Dehydration [Recovered/Resolved]
  - Prostate cancer stage IV [Not Recovered/Not Resolved]
  - Weight decreased [Recovering/Resolving]
  - Renal pain [Recovered/Resolved]
  - Gastrointestinal stoma output increased [Unknown]

NARRATIVE: CASE EVENT DATE: 20231017
